FAERS Safety Report 4636395-3 (Version None)
Quarter: 2005Q2

REPORT INFORMATION
  Report Type: 
  Country: None (occurrence: None)
  Receive Date: 20050413
  Receipt Date: 20050413
  Transmission Date: 20051028
  Serious: No
  Sender: FDA-Public Use
  Company Number: None

PATIENT
  Age: 52 Year
  Sex: Female
  Weight: 69.2 kg

DRUGS (14)
  1. CYCLOSPORINE [Suspect]
     Indication: HEART AND LUNG TRANSPLANT
     Dosage: 2 MG HOURLY INTRAVENOUS
     Route: 042
     Dates: start: 20050203, end: 20050314
  2. CYCLOSPORINE [Suspect]
     Indication: IMMUNOSUPPRESSION
     Dosage: 2 MG HOURLY INTRAVENOUS
     Route: 042
     Dates: start: 20050203, end: 20050314
  3. IMURAN [Concomitant]
  4. REGAN [Concomitant]
  5. SOLU-MEDROL [Concomitant]
  6. DIFLUCAN [Concomitant]
  7. SIMETHICONE [Concomitant]
  8. PROTONIX [Concomitant]
  9. FOLATE [Concomitant]
  10. B12 [Concomitant]
  11. PYRIDOXINE HCL [Concomitant]
  12. CYTOVENE [Concomitant]
  13. ASPIRIN [Concomitant]
  14. FE [Concomitant]

REACTIONS (2)
  - MUSCLE TWITCHING [None]
  - MYOCLONUS [None]
